FAERS Safety Report 6448357-4 (Version None)
Quarter: 2009Q4

REPORT INFORMATION
  Report Type: 
  Country: None (occurrence: None)
  Receive Date: 20091120
  Receipt Date: 20091106
  Transmission Date: 20100525
  Serious: Yes (Hospitalization, Other)
  Sender: FDA-Public Use
  Company Number: PHHY2009FR48799

PATIENT
  Sex: Male

DRUGS (5)
  1. GLEEVEC [Suspect]
     Indication: GASTROINTESTINAL STROMAL TUMOUR
     Dosage: 400 MG DAILY
     Dates: start: 20090715
  2. GLEEVEC [Suspect]
     Dosage: 200 MG DAILY
     Dates: start: 20090819
  3. GLEEVEC [Suspect]
     Dosage: UNK
     Dates: start: 20090912, end: 20090925
  4. PROTON PUMP INHIBITORS [Concomitant]
  5. ANTIBIOTICS [Concomitant]

REACTIONS (4)
  - FATIGUE [None]
  - GASTROOESOPHAGEAL REFLUX DISEASE [None]
  - OCULAR DISCOMFORT [None]
  - PLEURISY [None]
